FAERS Safety Report 9752782 (Version 1)
Quarter: 2013Q4

REPORT INFORMATION
  Report Type: Report from Study
  Country: GB (occurrence: GB)
  Receive Date: 20131213
  Receipt Date: 20131213
  Transmission Date: 20140711
  Serious: Yes (Other)
  Sender: FDA-Public Use
  Company Number: GB-ASTELLAS-2013US012918

PATIENT
  Sex: Female

DRUGS (2)
  1. TACROLIMUS OINTMENT [Suspect]
     Indication: DERMATITIS ATOPIC
     Dosage: 0.03 %, UNKNOWN/D
     Route: 061
     Dates: start: 20040705
  2. EPADERM [Concomitant]
     Indication: DERMATITIS ATOPIC
     Dosage: 500 G, UNKNOWN/D
     Route: 061

REACTIONS (1)
  - Nodule [Unknown]
